FAERS Safety Report 7390986-8 (Version None)
Quarter: 2011Q2

REPORT INFORMATION
  Report Type: 
  Country: None (occurrence: None)
  Receive Date: 20110404
  Receipt Date: 20110331
  Transmission Date: 20111010
  Serious: No
  Sender: FDA-Public Use
  Company Number: US-PFIZER INC-2011072293

PATIENT
  Age: 83 Year
  Sex: Female
  Weight: 54.422 kg

DRUGS (2)
  1. ADVIL LIQUI-GELS [Suspect]
     Indication: PAIN IN EXTREMITY
     Dosage: 200 MG, UNK
     Route: 048
     Dates: start: 20110330
  2. ADVIL LIQUI-GELS [Suspect]
     Indication: BACK PAIN

REACTIONS (1)
  - HEADACHE [None]
